FAERS Safety Report 13886935 (Version 1)
Quarter: 2017Q3

REPORT INFORMATION
  Report Type: Spontaneous
  Country: US (occurrence: US)
  Receive Date: 20170821
  Receipt Date: 20170821
  Transmission Date: 20171127
  Serious: Yes (Other)
  Sender: FDA-Public Use
  Company Number: US-ROCHE-1040310

PATIENT
  Age: 70 Year
  Sex: Female
  Weight: 67 kg

DRUGS (15)
  1. ACTEMRA [Suspect]
     Active Substance: TOCILIZUMAB
     Indication: RHEUMATOID ARTHRITIS
     Dosage: RECENT DOSE ON 15/AUG/2011,12/SEP/2011,30/SEP/2011 AND 26/OCT/2011
     Route: 042
     Dates: start: 20100101, end: 201111
  2. PILOCARPINE 2% EYE DROPS [Concomitant]
     Route: 031
  3. XALATAN [Concomitant]
     Active Substance: LATANOPROST
     Dosage: 0.005%
     Route: 031
  4. PREDNISONE. [Concomitant]
     Active Substance: PREDNISONE
     Route: 048
  5. IMURAN [Concomitant]
     Active Substance: AZATHIOPRINE
     Route: 048
  6. RESTASIS [Concomitant]
     Active Substance: CYCLOSPORINE
     Dosage: 0.05%
     Route: 031
  7. B12 COMPLEX [Concomitant]
     Route: 065
  8. VITAMIN [Concomitant]
     Active Substance: VITAMINS
     Route: 065
  9. PREDNISONE. [Concomitant]
     Active Substance: PREDNISONE
     Route: 048
  10. PREDNISOLONE SODIUM PHOSPHATE. [Concomitant]
     Active Substance: PREDNISOLONE SODIUM PHOSPHATE
     Dosage: OPHTHALMIC, 1%
     Route: 031
  11. TIMOLOL. [Concomitant]
     Active Substance: TIMOLOL
     Dosage: 0.5%
     Route: 031
  12. METFORMIN [Concomitant]
     Active Substance: METFORMIN HYDROCHLORIDE
     Route: 048
  13. SIMVASTIN [Concomitant]
     Active Substance: SIMVASTATIN
     Route: 065
  14. PREDNISONE. [Concomitant]
     Active Substance: PREDNISONE
     Route: 048
  15. CITRACAL CAPLETS PLUS D [Concomitant]
     Route: 048

REACTIONS (1)
  - Drug ineffective [Unknown]

NARRATIVE: CASE EVENT DATE: 20111026
